FAERS Safety Report 9292209 (Version 2)
Quarter: 2013Q2

REPORT INFORMATION
  Report Type: Spontaneous
  Country: US (occurrence: None)
  Receive Date: 20121130
  Receipt Date: 20130524
  Transmission Date: 20140414
  Serious: Yes (Hospitalization, Disabling, Other)
  Sender: FDA-Public Use
  Company Number: 2009-0497

PATIENT
  Age: 13 Year
  Sex: Male
  Weight: 51 kg

DRUGS (3)
  1. INCRELEX [Suspect]
     Indication: PRIMARY INSULIN LIKE GROWTH FACTOR-1 DEFICIENCY
     Dosage: (120 UG/KG,2  IN 1 D)
     Route: 058
     Dates: start: 20070407, end: 20090113
  2. INCRELEX [Suspect]
     Indication: BODY HEIGHT BELOW NORMAL
     Dosage: (120 UG/KG,2  IN 1 D)
     Route: 058
     Dates: start: 20070407, end: 20090113
  3. INCRELEX [Suspect]
     Indication: OFF LABEL USE
     Dosage: (120 UG/KG,2  IN 1 D)
     Route: 058
     Dates: start: 20070407, end: 20090113

REACTIONS (4)
  - Epiphysiolysis [None]
  - Osteonecrosis [None]
  - Wound [None]
  - Limb asymmetry [None]
